FAERS Safety Report 4395188-5 (Version None)
Quarter: 2004Q3

REPORT INFORMATION
  Report Type: 
  Country: None (occurrence: None)
  Receive Date: 20040706
  Receipt Date: 20040624
  Transmission Date: 20050211
  Serious: Yes (Hospitalization)
  Sender: FDA-Public Use
  Company Number: GBR-2004-0001148

PATIENT
  Age: 77 Year
  Sex: Male

DRUGS (2)
  1. MORPHINE SULFATE [Suspect]
     Dosage: 400 MG, DAILY, ORAL
     Route: 048
     Dates: start: 20040128
  2. TRAMADOL HCL [Suspect]
     Dosage: 40 MG, DAILY, INTRAVENOUS
     Route: 042
     Dates: start: 20040121

REACTIONS (1)
  - INTESTINAL OBSTRUCTION [None]
